FAERS Safety Report 7386849-4 (Version None)
Quarter: 2011Q1

REPORT INFORMATION
  Report Type: 
  Country: None (occurrence: None)
  Receive Date: 20110331
  Receipt Date: 20110322
  Transmission Date: 20110831
  Serious: No
  Sender: FDA-Public Use
  Company Number: US-JNJFOC-20110311026

PATIENT
  Age: 19 Year
  Sex: Male

DRUGS (6)
  1. CLOZARIL [Suspect]
     Indication: PSYCHOTIC DISORDER
     Route: 048
  2. TRILEPTAL [Concomitant]
     Indication: CONVULSION
     Route: 048
  3. STRATTERA [Concomitant]
     Route: 048
  4. RISPERDAL [Suspect]
     Indication: PSYCHOTIC DISORDER
     Route: 048
  5. RISPERDAL [Suspect]
     Route: 048
  6. INVEGA SUSTENNA [Suspect]
     Indication: PSYCHOTIC DISORDER
     Route: 030

REACTIONS (2)
  - DRUG INEFFECTIVE [None]
  - NEUTROPHIL COUNT DECREASED [None]
